FAERS Safety Report 8206825-9 (Version None)
Quarter: 2012Q1

REPORT INFORMATION
  Report Type: 
  Country: None (occurrence: None)
  Receive Date: 20120314
  Receipt Date: 20120302
  Transmission Date: 20120608
  Serious: Yes (Other)
  Sender: FDA-Public Use
  Company Number: TR-PAR PHARMACEUTICAL, INC-2012SCPR004228

PATIENT

DRUGS (11)
  1. RISPERIDONE [Concomitant]
     Dosage: 2.5 MG, / DAY
     Route: 065
  2. HALOPERIDOL [Concomitant]
     Indication: PRODUCT USED FOR UNKNOWN INDICATION
     Dosage: 2 MG, / DAY
     Route: 065
  3. FLUOXETINE HCL [Interacting]
     Indication: TIC
     Dosage: 40 MG, / DAY
     Route: 065
  4. RISPERIDONE [Concomitant]
     Indication: PRODUCT USED FOR UNKNOWN INDICATION
     Dosage: 0.5 MG, / DAY
     Route: 065
  5. SERTRALINE HYDROCHLORIDE [Concomitant]
     Indication: COMPULSIONS
     Dosage: 50 MG, / DAY
     Route: 065
  6. RISPERIDONE [Concomitant]
     Dosage: 1.5 MG, / DAY
     Route: 065
  7. SERTRALINE HYDROCHLORIDE [Concomitant]
     Dosage: 150 MG, / DAY
     Route: 065
  8. FLUOXETINE HCL [Suspect]
     Indication: OBSESSIVE-COMPULSIVE DISORDER
     Dosage: 20 MG, / DAY
     Route: 065
  9. RISPERIDONE [Concomitant]
     Dosage: 1 MG, / DAY
     Route: 065
  10. RISPERIDONE [Concomitant]
     Dosage: 2 MG, / DAY
     Route: 065
  11. ATOMOXETINE HCL [Interacting]
     Indication: ATTENTION DEFICIT/HYPERACTIVITY DISORDER
     Dosage: 25 MG, / DAY
     Route: 065

REACTIONS (3)
  - DRUG INTERACTION [None]
  - TIC [None]
  - CONDITION AGGRAVATED [None]
